FAERS Safety Report 8821721 (Version 1)
Quarter: 2012Q4

REPORT INFORMATION
  Report Type: 
  Country: US (occurrence: US)
  Receive Date: 20121002
  Receipt Date: 20121002
  Transmission Date: 20130627
  Serious: No
  Sender: FDA-Public Use
  Company Number: US-VERTEX PHARMACEUTICAL INC.-2012-020522

PATIENT
  Age: 59 Year
  Sex: Male
  Weight: 79 kg

DRUGS (10)
  1. VX-950 [Suspect]
     Indication: HEPATITIS C
     Dosage: 750 mg, tid
     Route: 048
     Dates: start: 20120523
  2. PEGINTRON                          /01543001/ [Suspect]
     Indication: HEPATITIS C
     Dosage: 120 ?g, UNK
     Route: 058
     Dates: start: 20120523
  3. RIBASPHERE [Suspect]
     Indication: HEPATITIS C
     Dosage: UNK
     Route: 048
     Dates: start: 20120523
  4. VITAMIN B 12 [Concomitant]
     Dosage: 100 ?g, UNK
  5. VITAMIN E                          /00110501/ [Concomitant]
     Dosage: 400 ut, UNK
  6. MULTIVITAMIN                       /00097801/ [Concomitant]
     Dosage: UNK
  7. METFORMIN HCL [Concomitant]
     Dosage: 500 mg, UNK
  8. CALCIUM [Concomitant]
     Dosage: 500 mg, qd
     Route: 048
     Dates: start: 20120525
  9. ASPIRIN [Concomitant]
     Dosage: 81 mg, qd
     Route: 048
     Dates: start: 20120525
  10. FISH OIL [Concomitant]
     Dosage: 1000 mg, qd
     Route: 048
     Dates: start: 20120525

REACTIONS (5)
  - Blister infected [Unknown]
  - Insomnia [Unknown]
  - Urticaria [Not Recovered/Not Resolved]
  - Rash generalised [Not Recovered/Not Resolved]
  - Pruritus [Not Recovered/Not Resolved]
